FAERS Safety Report 24898632 (Version 1)
Quarter: 2025Q1

REPORT INFORMATION
  Report Type: Report from Study
  Country: US (occurrence: US)
  Receive Date: 20250129
  Receipt Date: 20250129
  Transmission Date: 20250408
  Serious: Yes (Death)
  Sender: UCB
  Company Number: US-UCBSA-2025003214

PATIENT
  Age: 81 Year
  Sex: Female

DRUGS (1)
  1. CERTOLIZUMAB PEGOL [Suspect]
     Active Substance: CERTOLIZUMAB PEGOL
     Indication: Rheumatoid arthritis
     Dates: end: 20240229

REACTIONS (2)
  - Lung neoplasm malignant [Fatal]
  - Illness [Fatal]

NARRATIVE: CASE EVENT DATE: 20240817
